FAERS Safety Report 8497309-1 (Version None)
Quarter: 2012Q3

REPORT INFORMATION
  Report Type: 
  Country: None (occurrence: None)
  Receive Date: 20120709
  Receipt Date: 20120611
  Transmission Date: 20120928
  Serious: No
  Sender: FDA-Public Use
  Company Number: US-AMGEN-USASP2012036566

PATIENT
  Sex: Male

DRUGS (1)
  1. ENBREL [Suspect]
     Indication: PSORIASIS
     Dosage: 25 MG, QWK
     Dates: start: 20100101

REACTIONS (4)
  - DIZZINESS [None]
  - FEELING ABNORMAL [None]
  - INJECTION SITE HAEMATOMA [None]
  - PSORIASIS [None]
